FAERS Safety Report 22267030 (Version 1)
Quarter: 2023Q2

REPORT INFORMATION
  Report Type: Spontaneous
  Country: CN (occurrence: CN)
  Receive Date: 20230428
  Receipt Date: 20230428
  Transmission Date: 20230721
  Serious: Yes (Hospitalization)
  Sender: FDA-Public Use
  Company Number: CN-Merck Healthcare KGaA-9397626

PATIENT
  Age: 68 Year
  Sex: Male

DRUGS (5)
  1. ERBITUX [Suspect]
     Active Substance: CETUXIMAB
     Indication: Colon cancer
     Dosage: 0.9 G, DAILY
     Route: 041
     Dates: start: 20230317, end: 20230317
  2. LEUCOVORIN [Concomitant]
     Active Substance: LEUCOVORIN
     Indication: Colon cancer
     Dosage: UNK
     Dates: start: 20230317
  3. FLUOROURACIL [Concomitant]
     Active Substance: FLUOROURACIL
     Indication: Colon cancer
     Dosage: UNK
     Dates: start: 20230317
  4. IRINOTECAN [Concomitant]
     Active Substance: IRINOTECAN
     Indication: Colon cancer
     Dosage: UNK
     Dates: start: 20230317
  5. TORIPALIMAB [Concomitant]
     Active Substance: TORIPALIMAB
     Indication: Colon cancer
     Dosage: UNK
     Dates: start: 20230317

REACTIONS (5)
  - Palpitations [Unknown]
  - Chest discomfort [Unknown]
  - Flushing [Unknown]
  - Pyrexia [Unknown]
  - Chills [Unknown]

NARRATIVE: CASE EVENT DATE: 20230317
